FAERS Safety Report 13121798 (Version 1)
Quarter: 2017Q1

REPORT INFORMATION
  Report Type: Spontaneous
  Country: US (occurrence: US)
  Receive Date: 20170116
  Receipt Date: 20170116
  Transmission Date: 20170428
  Serious: Yes (Hospitalization)
  Sender: FDA-Public Use
  Company Number: None

PATIENT
  Sex: Female

DRUGS (9)
  1. GABAPENTIN. [Concomitant]
     Active Substance: GABAPENTIN
  2. IBUPROFEN. [Concomitant]
     Active Substance: IBUPROFEN
  3. OXYBUTYNIN [Concomitant]
     Active Substance: OXYBUTYNIN
  4. PREDNISONE. [Concomitant]
     Active Substance: PREDNISONE
  5. PREDNISOLONE. [Concomitant]
     Active Substance: PREDNISOLONE
  6. METFORMIN [Concomitant]
     Active Substance: METFORMIN HYDROCHLORIDE
  7. COSENTYX [Suspect]
     Active Substance: SECUKINUMAB
     Indication: PSORIASIS
     Route: 058
     Dates: start: 20160816
  8. CIPROFLOXACIN. [Concomitant]
     Active Substance: CIPROFLOXACIN
  9. NORTRIPTYLINE [Concomitant]
     Active Substance: NORTRIPTYLINE

REACTIONS (3)
  - Eye operation [None]
  - Drug dose omission [None]
  - Influenza [None]
